FAERS Safety Report 9519839 (Version 3)
Quarter: 2013Q4

REPORT INFORMATION
  Report Type: Spontaneous
  Country: BR (occurrence: BR)
  Receive Date: 20130912
  Receipt Date: 20131028
  Transmission Date: 20140711
  Serious: Yes (Hospitalization)
  Sender: FDA-Public Use
  Company Number: BR-PFIZER INC-2012147483

PATIENT
  Age: 70 Year
  Sex: Female
  Weight: 61 kg

DRUGS (10)
  1. SUTENT [Suspect]
     Indication: RENAL CANCER
     Dosage: 37.5 MG, CYCLE 2X1
     Route: 048
     Dates: start: 20120430
  2. SUTENT [Suspect]
     Dosage: 37.5 MG, 1X/DAY
     Route: 048
     Dates: start: 20120608
  3. SUTENT [Suspect]
     Dosage: 2 CAPSULES (75 MG), ONCE A DAY
     Route: 048
     Dates: end: 20131006
  4. MICARDIS [Concomitant]
     Dosage: 1 DF, DAILY 1 TABLET DAILY
  5. PURAN T4 [Concomitant]
     Dosage: STRENGTH 75 MG
  6. PRESSAT [Concomitant]
     Dosage: 1 DF, DAILY 1 TABLET DAILY
  7. BUSCOPAN [Concomitant]
     Indication: PAIN
     Dosage: UNK, AS NEEDED (TAKEN WHEN THE PATIENT FELT PAIN)
  8. DIMETICONE [Concomitant]
     Indication: PAIN
     Dosage: UNK, AS NEEDED (TAKEN WHEN THE PATIENT FELT PAIN)
  9. DORFLEX [Concomitant]
     Indication: PAIN
     Dosage: UNK, AS NEEDED (TAKEN WHEN THE PATIENT FELT PAIN)
  10. FRONTAL [Concomitant]
     Dosage: UNK

REACTIONS (12)
  - Gastrointestinal infection [Unknown]
  - Eating disorder [Not Recovered/Not Resolved]
  - Gastric disorder [Not Recovered/Not Resolved]
  - Dysgeusia [Unknown]
  - Abdominal pain upper [Unknown]
  - Weight decreased [Unknown]
  - Diarrhoea [Unknown]
  - Decreased appetite [Not Recovered/Not Resolved]
  - Sluggishness [Unknown]
  - Viral infection [Unknown]
  - Toxicity to various agents [Unknown]
  - Blood creatinine increased [Unknown]
